FAERS Safety Report 4915922-2 (Version None)
Quarter: 2006Q1

REPORT INFORMATION
  Report Type: 
  Country: None (occurrence: None)
  Receive Date: 20060214
  Receipt Date: 20060201
  Transmission Date: 20060701
  Serious: Yes (Disabling)
  Sender: FDA-Public Use
  Company Number: 200601054

PATIENT
  Age: 61 Year
  Sex: Female
  Weight: 75.7507 kg

DRUGS (14)
  1. BOTOX [Suspect]
     Indication: HEADACHE
     Dosage: 94 UNITS ONCE IM
     Route: 030
     Dates: start: 20050106, end: 20050106
  2. BOTOX [Suspect]
     Indication: HEADACHE
     Dates: start: 20030501
  3. PRILOSEC [Concomitant]
  4. LASIX [Concomitant]
  5. AMBIEN [Concomitant]
  6. PREDNISONE [Concomitant]
  7. CYTOXAN [Concomitant]
  8. ASPIRIN [Concomitant]
  9. IBUPROFEN [Concomitant]
  10. EXCEDRIN (MIGRAINE) [Concomitant]
  11. ZYRTEC [Concomitant]
  12. PHRENELIN [Concomitant]
  13. SEROQUEL [Concomitant]
  14. NEURONTIN [Concomitant]

REACTIONS (4)
  - ASTHENIA [None]
  - DENERVATION ATROPHY [None]
  - DYSARTHRIA [None]
  - SPINAL MUSCULAR ATROPHY [None]
